FAERS Safety Report 7316059-8 (Version None)
Quarter: 2011Q1

REPORT INFORMATION
  Report Type: 
  Country: None (occurrence: None)
  Receive Date: 20110225
  Receipt Date: 20110207
  Transmission Date: 20110831
  Serious: Yes (Other)
  Sender: FDA-Public Use
  Company Number: CA-PFIZER INC-2010018562

PATIENT
  Age: 49 Year
  Sex: Male
  Weight: 87.075 kg

DRUGS (3)
  1. CHAMPIX [Suspect]
     Indication: SMOKING CESSATION THERAPY
     Dosage: 0.5 MG, UNK
     Dates: start: 20080103, end: 20080117
  2. CHAMPIX [Suspect]
     Dosage: 1 MG, 2X/DAY
     Dates: start: 20080118, end: 20080219
  3. ALCOHOL [Concomitant]
     Dosage: 10 DRINKS

REACTIONS (3)
  - AGITATION [None]
  - PHYSICAL ASSAULT [None]
  - RESTLESSNESS [None]
